FAERS Safety Report 9306823 (Version 1)
Quarter: 2013Q1

REPORT INFORMATION
  Report Type: Spontaneous
  Country: US (occurrence: None)
  Receive Date: 20130329
  Receipt Date: 20130329
  Transmission Date: 20140127
  Serious: Yes (Hospitalization, Other)
  Sender: FDA-Public Use
  Company Number: ADR-2012-01327

PATIENT
  Sex: Male

DRUGS (2)
  1. BACLOFEN INTRATHECAL [Suspect]
     Indication: PAIN
  2. BACLOFEN INTRATHECAL [Suspect]
     Indication: NEUROPATHY PERIPHERAL

REACTIONS (14)
  - Mood swings [None]
  - Somnambulism [None]
  - Hypersomnia [None]
  - Treatment noncompliance [None]
  - Ill-defined disorder [None]
  - Lower limb fracture [None]
  - Malaise [None]
  - Drug withdrawal syndrome [None]
  - Drug administration error [None]
  - Memory impairment [None]
  - Impaired gastric emptying [None]
  - Diabetes mellitus [None]
  - Neuropathy peripheral [None]
  - Inadequate analgesia [None]
